FAERS Safety Report 5155943-0 (Version None)
Quarter: 2006Q4

REPORT INFORMATION
  Report Type: 
  Country: None (occurrence: None)
  Receive Date: 20061114
  Receipt Date: 20061031
  Transmission Date: 20070319
  Serious: Yes (Other)
  Sender: FDA-Public Use
  Company Number: 2006133187

PATIENT
  Age: 69 Year
  Sex: Female

DRUGS (3)
  1. NORVASC [Suspect]
     Indication: HYPERTENSION
     Dosage: 5 MG (5 MG,1 IN 24 HR)
     Dates: start: 20060101
  2. HERBAL PREPARATION INGREDIENTS UNKNOWN (HERBAL PREPARATION INGREDIENTS [Concomitant]
  3. DIOVAN [Concomitant]

REACTIONS (5)
  - BLOOD GLUCOSE INCREASED [None]
  - BLOOD PRESSURE SYSTOLIC INCREASED [None]
  - DRUG EFFECT DECREASED [None]
  - FEAR [None]
  - HEADACHE [None]
